FAERS Safety Report 23590857 (Version 1)
Quarter: 2024Q1

REPORT INFORMATION
  Report Type: Spontaneous
  Country: PL (occurrence: PL)
  Receive Date: 20240304
  Receipt Date: 20240304
  Transmission Date: 20240410
  Serious: Yes (Other)
  Sender: FDA-Public Use
  Company Number: PL-AMGEN-POLSP2024042177

PATIENT
  Age: 75 Year
  Sex: Female

DRUGS (1)
  1. PROLIA [Suspect]
     Active Substance: DENOSUMAB
     Indication: Osteoporosis postmenopausal
     Dosage: UNK
     Route: 065
     Dates: start: 20240212

REACTIONS (10)
  - Seizure [Unknown]
  - Choking sensation [Unknown]
  - Toothache [Unknown]
  - Pain in jaw [Unknown]
  - Eye pain [Unknown]
  - Injection site pain [Unknown]
  - Headache [Unknown]
  - Abdominal pain upper [Unknown]
  - Bone pain [Unknown]
  - Pain in extremity [Unknown]

NARRATIVE: CASE EVENT DATE: 20240201
